FAERS Safety Report 5530754-2 (Version None)
Quarter: 2007Q4

REPORT INFORMATION
  Report Type: 
  Country: None (occurrence: None)
  Receive Date: 20071130
  Receipt Date: 20071120
  Transmission Date: 20080405
  Serious: Yes (Hospitalization)
  Sender: FDA-Public Use
  Company Number: ES-ELI_LILLY_AND_COMPANY-ES200711004969

PATIENT
  Age: 74 Year
  Sex: Female

DRUGS (10)
  1. FORTEO [Suspect]
     Indication: OSTEOPOROSIS
     Dosage: 20 UG, UNKNOWN
     Route: 058
     Dates: start: 20071020, end: 20071023
  2. DIGOXIN [Interacting]
     Indication: CARDIAC DISORDER
     Dosage: UNK, UNKNOWN
     Dates: start: 20031001, end: 20071001
  3. DILUTOL [Concomitant]
     Dosage: UNK, UNKNOWN
  4. ENALAPRIL MALEATE [Concomitant]
     Dosage: 5 MG, UNKNOWN
  5. SINTROM [Concomitant]
     Dosage: UNK, UNKNOWN
  6. ORFIDAL [Concomitant]
     Dosage: UNK, UNKNOWN
  7. OMEPRAZOLE [Concomitant]
     Dosage: UNK, UNKNOWN
  8. NOLOTIL [Concomitant]
     Indication: PAIN
     Dosage: UNK, UNKNOWN
  9. TRANGOREX [Concomitant]
     Dosage: UNK, UNKNOWN
  10. ALDACTONE [Concomitant]
     Dosage: UNK, UNKNOWN

REACTIONS (5)
  - BACK PAIN [None]
  - DRUG INTERACTION [None]
  - PLEURAL EFFUSION [None]
  - THERAPEUTIC AGENT TOXICITY [None]
  - VOMITING [None]
